FAERS Safety Report 24881668 (Version 5)
Quarter: 2025Q4

REPORT INFORMATION
  Report Type: Spontaneous
  Country: CA (occurrence: CA)
  Receive Date: 20250124
  Receipt Date: 20251217
  Transmission Date: 20260117
  Serious: Yes (Death, Hospitalization, Other)
  Sender: CELLTRION
  Company Number: CA-PFIZER INC-PV202500008929

PATIENT

DRUGS (4)
  1. INFLIXIMAB [Suspect]
     Active Substance: INFLIXIMAB
     Indication: Rheumatoid arthritis
     Dosage: 200.0 MILLIGRAM
     Route: 042
  2. INFLIXIMAB [Suspect]
     Active Substance: INFLIXIMAB
     Dosage: 200.0 MILLIGRAM
     Route: 042
  3. INFLECTRA [Suspect]
     Active Substance: INFLIXIMAB-DYYB
     Indication: Rheumatoid arthritis
     Dosage: 200 MG EVERY 8 WEEKS (Q 0, 2 AND 6, THEN EVERY 8 WEEKS)
     Route: 042
     Dates: start: 20170228
  4. INFLECTRA [Suspect]
     Active Substance: INFLIXIMAB-DYYB
     Dosage: 200 MG EVERY 8 WEEKS (Q 0, 2 AND 6, THEN EVERY 8 WEEKS)
     Route: 042
     Dates: start: 20241219

REACTIONS (2)
  - Fractured sacrum [Fatal]
  - COVID-19 [Fatal]

NARRATIVE: CASE EVENT DATE: 20250101
